FAERS Safety Report 8378736-X (Version None)
Quarter: 2012Q2

REPORT INFORMATION
  Report Type: 
  Country: None (occurrence: None)
  Receive Date: 20120522
  Receipt Date: 20120516
  Transmission Date: 20120825
  Serious: Yes (Other)
  Sender: FDA-Public Use
  Company Number: US-AMGEN-USASP2012010955

PATIENT
  Age: 68 Year
  Sex: Female
  Weight: 54.422 kg

DRUGS (12)
  1. PREMARIN [Concomitant]
     Dosage: 0.3 MG, UNK
     Route: 048
  2. TOPROL-XL [Concomitant]
     Dosage: 100 MG, QD
     Route: 048
  3. PROLIA [Suspect]
     Route: 058
     Dates: start: 20101007
  4. CALCIUM [Concomitant]
     Dosage: 1000 MG, UNK
  5. PROLIA [Suspect]
     Indication: OSTEOPOROSIS POSTMENOPAUSAL
     Route: 058
     Dates: start: 20101007
  6. VALSARTAN [Concomitant]
     Dosage: UNK
     Route: 048
  7. VITAMIN D [Concomitant]
     Dosage: 800 IU, UNK
  8. METOPROLOL [Concomitant]
     Dosage: 100 MG, QD
  9. PROLIA [Suspect]
     Route: 058
     Dates: start: 20101007
  10. RESTORIL [Concomitant]
  11. SIMVASTATIN [Concomitant]
     Dosage: 40 MG, QHS
     Route: 048
  12. TEMAZEPAM [Concomitant]
     Dosage: 15 MG, QHS
     Route: 048

REACTIONS (4)
  - OSTEONECROSIS OF JAW [None]
  - PNEUMONIA [None]
  - BACK PAIN [None]
  - NECK PAIN [None]
